FAERS Safety Report 5495044-5 (Version None)
Quarter: 2007Q4

REPORT INFORMATION
  Report Type: 
  Country: None (occurrence: None)
  Receive Date: 20071024
  Receipt Date: 20071022
  Transmission Date: 20080405
  Serious: Yes (Hospitalization, Other)
  Sender: FDA-Public Use
  Company Number: US-BRISTOL-MYERS SQUIBB COMPANY-13952056

PATIENT
  Age: 50 Year
  Sex: Male
  Weight: 87 kg

DRUGS (3)
  1. ABILIFY [Suspect]
     Dosage: INITIAL DOSE: 15 MG. DOSAGE WAS TITRATED UPTO 20MG ON 27-SEP-2007
     Route: 048
     Dates: start: 20070925
  2. CLONAZEPAM [Suspect]
     Indication: ANXIETY
     Dates: start: 20070928
  3. VYTORIN [Concomitant]

REACTIONS (1)
  - INAPPROPRIATE ANTIDIURETIC HORMONE SECRETION [None]
